FAERS Safety Report 23014179 (Version 1)
Quarter: 2023Q4

REPORT INFORMATION
  Report Type: Spontaneous
  Country: US (occurrence: US)
  Receive Date: 20231002
  Receipt Date: 20231002
  Transmission Date: 20240109
  Serious: Yes (Hospitalization, Other)
  Sender: FDA-Public Use
  Company Number: US-TWI PHARMACEUTICAL, INC-2023SCTW000060

PATIENT

DRUGS (1)
  1. BUPROPION HYDROCHLORIDE XL [Suspect]
     Active Substance: BUPROPION HYDROCHLORIDE
     Indication: Product used for unknown indication
     Dosage: 9300 MG, SINGLE
     Route: 048

REACTIONS (13)
  - Ileus [Recovered/Resolved]
  - Pulmonary oedema [Recovered/Resolved]
  - Intentional overdose [Unknown]
  - Suicide attempt [Unknown]
  - Dizziness [Recovered/Resolved]
  - Heart rate decreased [Recovered/Resolved]
  - Seizure [Recovered/Resolved]
  - Electrocardiogram QRS complex prolonged [Recovered/Resolved]
  - Electrocardiogram QT prolonged [Recovered/Resolved]
  - Tachycardia [Recovered/Resolved]
  - Agitation [Recovered/Resolved]
  - Confusional state [Recovered/Resolved]
  - Hypotension [Recovered/Resolved]
